FAERS Safety Report 23539829 (Version 2)
Quarter: 2024Q3

REPORT INFORMATION
  Report Type: Report from Study
  Country: US (occurrence: US)
  Receive Date: 20240219
  Receipt Date: 20240723
  Transmission Date: 20241016
  Serious: Yes (Hospitalization, Other)
  Sender: ABBVIE
  Company Number: US-ABBVIE-5642445

PATIENT
  Sex: Female

DRUGS (1)
  1. SKYRIZI [Suspect]
     Active Substance: RISANKIZUMAB-RZAA
     Indication: Psoriasis
     Dosage: 150 MILLIGRAM, LAST DOSE ON 07 JUN 2024.
     Route: 058
     Dates: start: 20231025

REACTIONS (13)
  - Rectal neoplasm [Unknown]
  - Carpal tunnel syndrome [Not Recovered/Not Resolved]
  - Hyperhidrosis [Unknown]
  - Sinusitis [Recovered/Resolved]
  - Inappropriate schedule of product administration [Unknown]
  - Pruritus [Unknown]
  - Alopecia [Unknown]
  - Miliaria [Unknown]
  - Rash pruritic [Unknown]
  - Colostomy closure [Unknown]
  - Bacterial infection [Recovered/Resolved]
  - Gastrointestinal disorder [Not Recovered/Not Resolved]
  - Rash papular [Unknown]

NARRATIVE: CASE EVENT DATE: 20230101
